FAERS Safety Report 21190804 (Version 2)
Quarter: 2022Q3

REPORT INFORMATION
  Report Type: Spontaneous
  Country: GB (occurrence: GB)
  Receive Date: 20220809
  Receipt Date: 20220914
  Transmission Date: 20221027
  Serious: Yes (Other)
  Sender: FDA-Public Use
  Company Number: GB-AUROBINDO-AUR-APL-2022-027582

PATIENT
  Age: 43 Year
  Sex: Male
  Weight: 127 kg

DRUGS (1)
  1. AMLODIPINE BESYLATE [Suspect]
     Active Substance: AMLODIPINE BESYLATE
     Indication: Blood pressure measurement
     Dosage: 5 MILLIGRAM, ONCE A DAY (1 TABLET DAILY)
     Route: 048
     Dates: start: 20220624, end: 20220708

REACTIONS (7)
  - Meniere^s disease [Recovered/Resolved]
  - Balance disorder [Recovered/Resolved]
  - Ear discomfort [Recovered/Resolved]
  - Condition aggravated [Recovered/Resolved]
  - Dizziness [Recovered/Resolved]
  - Vertigo [Recovered/Resolved]
  - Drug ineffective [Unknown]
